FAERS Safety Report 15232273 (Version 2)
Quarter: 2018Q3

REPORT INFORMATION
  Report Type: Report from Study
  Country: CO (occurrence: CO)
  Receive Date: 20180802
  Receipt Date: 20180904
  Transmission Date: 20181010
  Serious: Yes (Other)
  Sender: FDA-Public Use
  Company Number: CO-JNJFOC-20180418299

PATIENT
  Age: 64 Year
  Sex: Male
  Weight: 50 kg

DRUGS (3)
  1. SIMPONI [Suspect]
     Active Substance: GOLIMUMAB
     Indication: PSORIASIS
     Route: 058
     Dates: start: 20171107, end: 20171107
  2. SIMPONI [Suspect]
     Active Substance: GOLIMUMAB
     Indication: PSORIASIS
     Route: 058
     Dates: start: 20171207, end: 20171207
  3. SIMPONI [Suspect]
     Active Substance: GOLIMUMAB
     Indication: PSORIASIS
     Route: 058
     Dates: start: 20180307, end: 20180307

REACTIONS (5)
  - Arthralgia [Recovering/Resolving]
  - Bone pain [Recovering/Resolving]
  - Tuberculosis [Recovering/Resolving]
  - Product use in unapproved indication [Unknown]
  - Off label use [Unknown]

NARRATIVE: CASE EVENT DATE: 20171107
